FAERS Safety Report 21209293 (Version 1)
Quarter: 2022Q3

REPORT INFORMATION
  Report Type: Spontaneous
  Country: KR (occurrence: None)
  Receive Date: 20220813
  Receipt Date: 20220813
  Transmission Date: 20221027
  Serious: Yes (Hospitalization, Other)
  Sender: FDA-Public Use
  Company Number: 2022A284128

PATIENT
  Age: 64 Year
  Sex: Male

DRUGS (1)
  1. GEFITINIB [Suspect]
     Active Substance: GEFITINIB
     Route: 048

REACTIONS (2)
  - Haemoptysis [Unknown]
  - Disease progression [Unknown]
